FAERS Safety Report 15318418 (Version 1)
Quarter: 2018Q3

REPORT INFORMATION
  Report Type: Spontaneous
  Country: US (occurrence: US)
  Receive Date: 20180825
  Receipt Date: 20180825
  Transmission Date: 20181010
  Serious: No
  Sender: FDA-Public Use
  Company Number: US-TEVA-2018-US-947623

PATIENT
  Sex: Female

DRUGS (2)
  1. VALSARTAN W/HYDROCHLOROTHIAZIDE [Suspect]
     Active Substance: HYDROCHLOROTHIAZIDE\VALSARTAN
     Dosage: 1 DOSAGE FORM: VALSARTAN 320 MG + HYDROCHLOROTHIAZIDE 25 MG; SPLITTING THE TABLET IN HALF
     Route: 065
  2. VALSARTAN W/HYDROCHLOROTHIAZIDE [Suspect]
     Active Substance: HYDROCHLOROTHIAZIDE\VALSARTAN
     Dosage: 1 DOSAGE FORM: VALSARTAN 320 MG + HYDROCHLOROTHIAZIDE 25 MG
     Route: 065
     Dates: start: 2013

REACTIONS (2)
  - Hypotension [Unknown]
  - Wrong technique in product usage process [Unknown]
